FAERS Safety Report 5702937-X (Version None)
Quarter: 2008Q2

REPORT INFORMATION
  Report Type: 
  Country: None (occurrence: None)
  Receive Date: 20080408
  Receipt Date: 20080327
  Transmission Date: 20081010
  Serious: Yes (Other)
  Sender: FDA-Public Use
  Company Number: GXKR2008CA02854

PATIENT
  Age: 6 Month
  Sex: 0

DRUGS (9)
  1. METHYLPREDNISOLONE [Suspect]
     Indication: GRAFT VERSUS HOST DISEASE
     Dosage: CUMULATIVE DOSE OF 458.7 MG/KG
  2. MYCOPHENOLATE MOFETIL (MYCOPHENOLATE MOFETIL)` [Concomitant]
  3. ANTITHYMOCYTE IMMUNOGLOBULIN (ANTITHYMOCYTE IMMUNOGLOBULIN) [Concomitant]
  4. DACLIZUMAB (DACLIZUMAB) [Concomitant]
  5. CYCLOSPORINE [Concomitant]
  6. AMLODIPINE [Concomitant]
  7. NIFEDIPINE [Concomitant]
  8. ENALAPRIL (ENALAPRI [Concomitant]
  9. HYDRALAZINE HCL [Concomitant]

REACTIONS (2)
  - HYPERTENSION [None]
  - VENTRICULAR HYPERTROPHY [None]
